FAERS Safety Report 9769055 (Version 1)
Quarter: 2013Q4

REPORT INFORMATION
  Report Type: Spontaneous
  Country: US (occurrence: None)
  Receive Date: 20131217
  Receipt Date: 20131217
  Transmission Date: 20140711
  Serious: Yes (Other)
  Sender: FDA-Public Use
  Company Number: None

PATIENT
  Age: 83 Year
  Sex: Male
  Weight: 70.31 kg

DRUGS (1)
  1. FINASTERIDE [Suspect]
     Indication: PROSTATOMEGALY
     Dosage: 1 PILL DAILY
     Route: 048
     Dates: start: 20131113, end: 20131215

REACTIONS (5)
  - Depression [None]
  - Anger [None]
  - Drug ineffective [None]
  - Product substitution issue [None]
  - Product quality issue [None]
